FAERS Safety Report 18247086 (Version 1)
Quarter: 2020Q3

REPORT INFORMATION
  Report Type: Spontaneous
  Country: US (occurrence: US)
  Receive Date: 20200909
  Receipt Date: 20200909
  Transmission Date: 20201103
  Serious: No
  Sender: FDA-Public Use
  Company Number: US-SA-2020SA243140

PATIENT

DRUGS (14)
  1. ASPIR [Concomitant]
     Active Substance: ASPIRIN
  2. TAMSULOSIN HYDROCHLORIDE. [Concomitant]
     Active Substance: TAMSULOSIN HYDROCHLORIDE
  3. DUPIXENT [Suspect]
     Active Substance: DUPILUMAB
     Indication: ASTHMA
     Dosage: 300 MG, QOW
     Route: 058
     Dates: start: 20200731
  4. PROAIR [FLUTICASONE PROPIONATE] [Concomitant]
     Active Substance: FLUTICASONE PROPIONATE
  5. METFORMIN [Concomitant]
     Active Substance: METFORMIN HYDROCHLORIDE
  6. DUPIXENT [Suspect]
     Active Substance: DUPILUMAB
     Indication: EOSINOPENIA
  7. ADVAIR HFA [Concomitant]
     Active Substance: FLUTICASONE PROPIONATE\SALMETEROL XINAFOATE
  8. VITAMIN D [COLECALCIFEROL] [Concomitant]
     Active Substance: CHOLECALCIFEROL
  9. MONTELUKAST [Concomitant]
     Active Substance: MONTELUKAST SODIUM
  10. DUPIXENT [Suspect]
     Active Substance: DUPILUMAB
     Indication: ILLNESS
  11. OZEMPIC [Concomitant]
     Active Substance: SEMAGLUTIDE
  12. GLIMEPIRIDE. [Concomitant]
     Active Substance: GLIMEPIRIDE
  13. ATORVASTATIN CALCIUM. [Concomitant]
     Active Substance: ATORVASTATIN CALCIUM
  14. AMLODIPINE;ATORVASTATIN [Concomitant]

REACTIONS (3)
  - Asthma [Unknown]
  - Product use in unapproved indication [Unknown]
  - Hypersensitivity [Unknown]

NARRATIVE: CASE EVENT DATE: 2020
